FAERS Safety Report 9513792 (Version 1)
Quarter: 2013Q3

REPORT INFORMATION
  Report Type: Spontaneous
  Country: US (occurrence: US)
  Receive Date: 20130910
  Receipt Date: 20130910
  Transmission Date: 20140515
  Serious: Yes (Hospitalization)
  Sender: FDA-Public Use
  Company Number: US-ABBOTT-13P-163-1143681-00

PATIENT
  Age: 36 Year
  Sex: Male
  Weight: 68.55 kg

DRUGS (4)
  1. CREON [Suspect]
     Indication: PANCREATIC INSUFFICIENCY
     Dosage: 2 WITH EACH MEAL AND ONE WITH SNACK
     Route: 048
     Dates: start: 201302
  2. NOVOLOG [Concomitant]
     Indication: DIABETES MELLITUS
  3. LANTUS [Concomitant]
     Indication: DIABETES MELLITUS
  4. CHEMOTHERAPY [Concomitant]
     Indication: PANCREATIC CARCINOMA
     Dates: start: 201305

REACTIONS (2)
  - Gastrointestinal haemorrhage [Recovered/Resolved]
  - Loss of consciousness [Recovered/Resolved]
